FAERS Safety Report 4721811-9 (Version None)
Quarter: 2005Q3

REPORT INFORMATION
  Report Type: 
  Country: None (occurrence: None)
  Receive Date: 20050721
  Receipt Date: 20050425
  Transmission Date: 20060218
  Serious: No
  Sender: FDA-Public Use
  Company Number: US-BRISTOL-MYERS SQUIBB COMPANY-12945507

PATIENT
  Sex: Female

DRUGS (6)
  1. COUMADIN [Suspect]
     Indication: THROMBOSIS
     Dates: start: 20040601
  2. ESTER-C [Suspect]
     Dates: start: 20050201, end: 20050401
  3. PROTONIX [Concomitant]
  4. VITAMIN B COMPLEX CAP [Concomitant]
  5. FOLIC ACID [Concomitant]
  6. ASCORBIC ACID [Concomitant]

REACTIONS (1)
  - PAIN IN EXTREMITY [None]
